FAERS Safety Report 12966154 (Version 4)
Quarter: 2016Q4

REPORT INFORMATION
  Report Type: Spontaneous
  Country: US (occurrence: US)
  Receive Date: 20161122
  Receipt Date: 20161207
  Transmission Date: 20170207
  Serious: Yes (Hospitalization, Other)
  Sender: FDA-Public Use
  Company Number: US-ALLERGAN-1677265US

PATIENT
  Age: 74 Year
  Sex: Male

DRUGS (4)
  1. MYCOPHENOLATE MOFETIL. [Concomitant]
     Active Substance: MYCOPHENOLATE MOFETIL
     Dosage: UNK
  2. SUCRALFATE - BP [Suspect]
     Active Substance: SUCRALFATE
     Indication: GASTRIC ULCER
     Dosage: UNK
  3. METHYLPREDNISOLONE. [Suspect]
     Active Substance: METHYLPREDNISOLONE
     Indication: BEHCET^S SYNDROME
  4. TACROLIMUS. [Suspect]
     Active Substance: TACROLIMUS
     Indication: PRODUCT USED FOR UNKNOWN INDICATION
     Dosage: UNK

REACTIONS (7)
  - Pathergy reaction [Recovering/Resolving]
  - Gastrointestinal mucosal necrosis [Recovering/Resolving]
  - Drug ineffective [Unknown]
  - Condition aggravated [Recovering/Resolving]
  - Gastrointestinal ulcer [Recovering/Resolving]
  - Gastric ulcer [Recovering/Resolving]
  - Toxicity to various agents [Recovering/Resolving]
